FAERS Safety Report 9214924 (Version 2)
Quarter: 2013Q2

REPORT INFORMATION
  Report Type: Spontaneous
  Country: FR (occurrence: KE)
  Receive Date: 20130405
  Receipt Date: 20130419
  Transmission Date: 20140414
  Serious: Yes (Hospitalization)
  Sender: FDA-Public Use
  Company Number: FR-GLAXOSMITHKLINE-B0878653A

PATIENT
  Sex: Female

DRUGS (2)
  1. MALARONE [Suspect]
     Indication: MALARIA PROPHYLAXIS
     Route: 048
  2. ZINNAT [Suspect]
     Indication: LUNG INFECTION
     Dates: start: 2012, end: 2012

REACTIONS (8)
  - Stevens-Johnson syndrome [Recovering/Resolving]
  - Liver disorder [Recovering/Resolving]
  - Oedema peripheral [Recovered/Resolved]
  - Cough [Recovered/Resolved]
  - Skin disorder [Recovering/Resolving]
  - Eosinophilia [Recovered/Resolved]
  - Lipase increased [Recovered/Resolved]
  - Drug hypersensitivity [Recovered/Resolved]
